FAERS Safety Report 12437372 (Version 1)
Quarter: 2016Q2

REPORT INFORMATION
  Report Type: Spontaneous
  Country: US (occurrence: US)
  Receive Date: 20160606
  Receipt Date: 20160606
  Transmission Date: 20160815
  Serious: No
  Sender: FDA-Public Use
  Company Number: US-BAYER-2016-102018

PATIENT
  Age: 81 Year
  Sex: Female
  Weight: 77.98 kg

DRUGS (2)
  1. MIRALAX [Suspect]
     Active Substance: POLYETHYLENE GLYCOL 3350
     Indication: CONSTIPATION
     Dosage: 17 G, QD
     Route: 048
  2. HEMATIN [Concomitant]
     Active Substance: HEMATIN
     Dosage: UNK

REACTIONS (4)
  - Constipation [None]
  - Product use issue [None]
  - Diarrhoea [None]
  - Expired product administered [None]
